FAERS Safety Report 12726161 (Version 2)
Quarter: 2016Q3

REPORT INFORMATION
  Report Type: Spontaneous
  Country: JP (occurrence: JP)
  Receive Date: 20160908
  Receipt Date: 20160915
  Transmission Date: 20161109
  Serious: Yes (Other)
  Sender: FDA-Public Use
  Company Number: JP-GLAXOSMITHKLINE-JP2016GSK130572

PATIENT
  Sex: Male

DRUGS (2)
  1. VOLTAREN [Suspect]
     Active Substance: DICLOFENAC SODIUM
     Indication: PAIN
     Dosage: UNK
     Route: 048
  2. ONBREZ INHALATION CAPSULES [Suspect]
     Active Substance: INDACATEROL
     Indication: CHRONIC OBSTRUCTIVE PULMONARY DISEASE
     Dosage: UNK
     Route: 055

REACTIONS (14)
  - Neck pain [Unknown]
  - Musculoskeletal pain [Unknown]
  - Cough [Unknown]
  - Back pain [Unknown]
  - Muscle twitching [Unknown]
  - Pain in extremity [Unknown]
  - Headache [Unknown]
  - Gamma-glutamyltransferase increased [Unknown]
  - Hypoaesthesia [Unknown]
  - Paralysis [Unknown]
  - Chest pain [Unknown]
  - Hepatic steatosis [Unknown]
  - Oedema peripheral [Unknown]
  - Speech disorder [Unknown]

NARRATIVE: CASE EVENT DATE: 20160830
